FAERS Safety Report 8789133 (Version 1)
Quarter: 2012Q4

REPORT INFORMATION
  Report Type: Spontaneous
  Country: US (occurrence: None)
  Receive Date: 20120910
  Receipt Date: 20120910
  Transmission Date: 20130627
  Serious: Yes (Other)
  Sender: FDA-Public Use
  Company Number: None

PATIENT
  Age: 48 Year
  Sex: Female
  Weight: 65.77 kg

DRUGS (1)
  1. SUNSCREEN [Suspect]
     Indication: THERAPEUTIC SKIN CARE TOPICAL
     Dosage: Thincoating 1x day skin
     Dates: start: 20120620, end: 20120630

REACTIONS (3)
  - Rash [None]
  - Rash macular [None]
  - Pruritus [None]
